FAERS Safety Report 22539788 (Version 1)
Quarter: 2023Q2

REPORT INFORMATION
  Report Type: Spontaneous
  Country: US (occurrence: None)
  Receive Date: 20230607
  Receipt Date: 20230607
  Transmission Date: 20230722
  Serious: Yes (Life-Threatening, Disabling, Other)
  Sender: FDA-Public Use
  Company Number: None

PATIENT
  Age: 89 Year
  Sex: Male
  Weight: 77.11 kg

DRUGS (14)
  1. AVASTIN [Suspect]
     Active Substance: BEVACIZUMAB
     Indication: Macular degeneration
     Dates: start: 202004
  2. DEVICE [Concomitant]
     Active Substance: DEVICE
  3. XARELTO [Concomitant]
     Active Substance: RIVAROXABAN
  4. METOPROLOL SUCCINATE [Concomitant]
     Active Substance: METOPROLOL SUCCINATE
  5. AMIODARONE [Concomitant]
     Active Substance: AMIODARONE
  6. DICLOFENAC SODIUM [Concomitant]
     Active Substance: DICLOFENAC SODIUM
  7. DILTIAZEM [Concomitant]
     Active Substance: DILTIAZEM
  8. FENTANYL [Concomitant]
     Active Substance: FENTANYL
  9. LISINOPRIL [Concomitant]
     Active Substance: LISINOPRIL
  10. LUMAGAN EYE DROPS [Concomitant]
  11. TIMOLOL [Concomitant]
     Active Substance: TIMOLOL
  12. TYLENOL [Concomitant]
     Active Substance: ACETAMINOPHEN
  13. VITAMIN D [Concomitant]
     Active Substance: VITAMIN D NOS
  14. ALEVE [Concomitant]
     Active Substance: NAPROXEN SODIUM

REACTIONS (5)
  - Eye pain [None]
  - Blindness [None]
  - Eye infection [None]
  - Gingival bleeding [None]
  - Injection related reaction [None]

NARRATIVE: CASE EVENT DATE: 20230315
